FAERS Safety Report 7797033-4 (Version None)
Quarter: 2011Q4

REPORT INFORMATION
  Report Type: 
  Country: None (occurrence: None)
  Receive Date: 20111005
  Receipt Date: 20110929
  Transmission Date: 20120403
  Serious: Yes (Death)
  Sender: FDA-Public Use
  Company Number: US-SANOFI-AVENTIS-2011SA063896

PATIENT
  Sex: Male

DRUGS (10)
  1. NEUPOGEN [Concomitant]
     Dates: start: 20101004, end: 20101004
  2. NEUPOGEN [Concomitant]
     Dates: start: 20101206, end: 20101206
  3. HORMONES AND RELATED AGENTS [Concomitant]
     Indication: PROSTATE CANCER
  4. JEVTANA KIT [Suspect]
     Indication: PROSTATE CANCER
     Route: 041
     Dates: start: 20101004, end: 20101004
  5. JEVTANA KIT [Suspect]
     Route: 041
     Dates: start: 20101025, end: 20101025
  6. NEUPOGEN [Concomitant]
     Dates: start: 20101115, end: 20101115
  7. JEVTANA KIT [Suspect]
     Route: 041
     Dates: start: 20101227, end: 20101227
  8. JEVTANA KIT [Suspect]
     Route: 041
     Dates: start: 20101115, end: 20101115
  9. JEVTANA KIT [Suspect]
     Route: 041
     Dates: start: 20101206, end: 20101206
  10. NEUPOGEN [Concomitant]
     Dates: start: 20101025, end: 20101025

REACTIONS (2)
  - PNEUMONIA [None]
  - PULMONARY EMBOLISM [None]
